FAERS Safety Report 10034732 (Version 1)
Quarter: 2014Q1

REPORT INFORMATION
  Report Type: Spontaneous
  Country: US (occurrence: None)
  Receive Date: 20140306
  Receipt Date: 20140306
  Transmission Date: 20141002
  Serious: Yes (Hospitalization)
  Sender: FDA-Public Use
  Company Number: 163-21880-13010034

PATIENT
  Age: 61 Year
  Sex: Female

DRUGS (11)
  1. REVLIMID [Suspect]
     Indication: MYELODYSPLASTIC SYNDROME
     Dosage: 10 MG, 1 IN 1 D, PO
     Route: 048
     Dates: start: 20121012, end: 201304
  2. BABY ASPIRIN (ACETYLSALICYLIC ACID) [Concomitant]
  3. CYMBALTA [Concomitant]
  4. ESTRACE (CREAM) [Concomitant]
  5. GLUCOPHAGE [Concomitant]
  6. HUMALOG MIX (INSULIN LISPRO) [Concomitant]
  7. KLONOPIN (CLONAZEPAM) [Concomitant]
  8. METAMUCIL [Concomitant]
  9. METOPROLOL TARTRATE (METOPROLOL TARTRATE) [Concomitant]
  10. MIRALAX (MACROGOL) [Concomitant]
  11. NASONEX (MOMETASONE FUROATE) [Concomitant]

REACTIONS (3)
  - Acute febrile neutrophilic dermatosis [None]
  - Dizziness [None]
  - Pyrexia [None]
